FAERS Safety Report 5021692-2 (Version None)
Quarter: 2006Q2

REPORT INFORMATION
  Report Type: 
  Country: None (occurrence: None)
  Receive Date: 20060601
  Receipt Date: 20060311
  Transmission Date: 20061013
  Serious: No
  Sender: FDA-Public Use
  Company Number: 2006PV010074

PATIENT
  Age: 42 Year
  Sex: Male
  Weight: 102.5129 kg

DRUGS (6)
  1. BYETTA [Suspect]
     Indication: DIABETES MELLITUS
     Dosage: SEE IMAGE
     Route: 058
     Dates: start: 20060125, end: 20060201
  2. BYETTA [Suspect]
     Indication: DIABETES MELLITUS
     Dosage: SEE IMAGE
     Route: 058
     Dates: start: 20060202, end: 20060208
  3. BYETTA [Suspect]
     Indication: DIABETES MELLITUS
     Dosage: SEE IMAGE
     Route: 058
     Dates: start: 20060209, end: 20060215
  4. BYETTA [Suspect]
     Indication: DIABETES MELLITUS
     Dosage: SEE IMAGE
     Route: 058
     Dates: start: 20060209, end: 20060215
  5. BYETTA [Suspect]
     Indication: DIABETES MELLITUS
     Dosage: SEE IMAGE
     Route: 058
     Dates: start: 20060216
  6. LANTUS [Concomitant]

REACTIONS (5)
  - ABDOMINAL DISTENSION [None]
  - DECREASED APPETITE [None]
  - NAUSEA [None]
  - VOMITING PROJECTILE [None]
  - WEIGHT DECREASED [None]
